FAERS Safety Report 12527802 (Version 3)
Quarter: 2016Q3

REPORT INFORMATION
  Report Type: Spontaneous
  Country: DE (occurrence: DE)
  Receive Date: 20160705
  Receipt Date: 20160826
  Transmission Date: 20161109
  Serious: Yes (Hospitalization, Other)
  Sender: FDA-Public Use
  Company Number: PHHY2016DE089603

PATIENT
  Sex: Female

DRUGS (3)
  1. DESFERAL [Suspect]
     Active Substance: DEFEROXAMINE MESYLATE
     Indication: IRON OVERLOAD
     Dosage: 16 G IN 150 ML, QW
     Route: 065
  2. INSULIN [Concomitant]
     Active Substance: INSULIN NOS
     Indication: PRODUCT USED FOR UNKNOWN INDICATION
     Route: 065
  3. DESFERAL [Suspect]
     Active Substance: DEFEROXAMINE MESYLATE
     Dosage: 12 G, UNK
     Route: 065
     Dates: start: 201606

REACTIONS (4)
  - Asthenia [Recovering/Resolving]
  - Cardiac failure [Recovering/Resolving]
  - Circulatory collapse [Recovering/Resolving]
  - Renal impairment [Recovering/Resolving]
